FAERS Safety Report 7901899-4 (Version None)
Quarter: 2011Q4

REPORT INFORMATION
  Report Type: 
  Country: None (occurrence: None)
  Receive Date: 20111108
  Receipt Date: 20111101
  Transmission Date: 20120403
  Serious: Yes (Other)
  Sender: FDA-Public Use
  Company Number: US-AMGEN-USASP2011056929

PATIENT
  Age: 47 Year
  Sex: Male

DRUGS (1)
  1. ENBREL [Suspect]
     Indication: RHEUMATOID ARTHRITIS
     Dosage: UNK UNK, QWK
     Dates: start: 20110804, end: 20111001

REACTIONS (3)
  - LOWER RESPIRATORY TRACT INFECTION [None]
  - PLEURAL EFFUSION [None]
  - MIDDLE EAR EFFUSION [None]
